FAERS Safety Report 24184721 (Version 1)
Quarter: 2024Q3

REPORT INFORMATION
  Report Type: Spontaneous
  Country: US (occurrence: None)
  Receive Date: 20240807
  Receipt Date: 20240807
  Transmission Date: 20241017
  Serious: Yes (Hospitalization)
  Sender: Public
  Company Number: None

PATIENT
  Age: 59 Year
  Sex: Female
  Weight: 81.9 kg

DRUGS (1)
  1. LUMIFY [Suspect]
     Active Substance: BRIMONIDINE TARTRATE
     Indication: Ocular hyperaemia
     Route: 047
     Dates: start: 20240803, end: 20240804

REACTIONS (8)
  - Anisocoria [None]
  - Palpitations [None]
  - Swelling of eyelid [None]
  - Eyelid ptosis [None]
  - Hot flush [None]
  - Product formulation issue [None]
  - Drug hypersensitivity [None]
  - Inability to afford medication [None]

NARRATIVE: CASE EVENT DATE: 20240805
